FAERS Safety Report 9224409 (Version 1)
Quarter: 2013Q2

REPORT INFORMATION
  Report Type: Spontaneous
  Country: US (occurrence: None)
  Receive Date: 20130409
  Receipt Date: 20130409
  Transmission Date: 20140414
  Serious: Yes (Hospitalization)
  Sender: FDA-Public Use
  Company Number: None

PATIENT
  Age: 76 Year
  Sex: Female
  Weight: 79.38 kg

DRUGS (1)
  1. GABAPENTIN [Suspect]
     Indication: NEUROPATHY PERIPHERAL
     Dosage: 1 CAP 300 MG 3 TIMES A DAY
     Dates: start: 20120430

REACTIONS (5)
  - Dyspnoea [None]
  - Abdominal pain [None]
  - Feeling drunk [None]
  - Mania [None]
  - Memory impairment [None]
